FAERS Safety Report 10469598 (Version 1)
Quarter: 2014Q3

REPORT INFORMATION
  Report Type: Spontaneous
  Country: US (occurrence: None)
  Receive Date: 20140922
  Receipt Date: 20140922
  Transmission Date: 20150326
  Serious: Yes (Hospitalization)
  Sender: FDA-Public Use
  Company Number: None

PATIENT
  Age: 60 Year
  Sex: Male
  Weight: 67.27 kg

DRUGS (7)
  1. LISINOPRIL. [Concomitant]
     Active Substance: LISINOPRIL
  2. LUNESTA [Concomitant]
     Active Substance: ESZOPICLONE
  3. COUMADIN [Concomitant]
     Active Substance: WARFARIN SODIUM
  4. GEMCITABINE HYDROCHLORIDE. [Suspect]
     Active Substance: GEMCITABINE HYDROCHLORIDE
     Dates: start: 20140819
  5. CARVEDILOL. [Concomitant]
     Active Substance: CARVEDILOL
  6. METFORMIN [Concomitant]
     Active Substance: METFORMIN HYDROCHLORIDE
  7. NIACIN. [Concomitant]
     Active Substance: NIACIN

REACTIONS (10)
  - Fatigue [None]
  - Abdominal pain [None]
  - Haemorrhage [None]
  - Syncope [None]
  - Gastrointestinal haemorrhage [None]
  - Haematochezia [None]
  - Anaemia [None]
  - Fall [None]
  - Vomiting [None]
  - Dyspnoea [None]

NARRATIVE: CASE EVENT DATE: 20140909
